FAERS Safety Report 20507709 (Version 1)
Quarter: 2022Q1

REPORT INFORMATION
  Report Type: Spontaneous
  Country: US (occurrence: US)
  Receive Date: 20220223
  Receipt Date: 20220223
  Transmission Date: 20220423
  Serious: No
  Sender: FDA-Public Use
  Company Number: US-PERRIGO-21US002004

PATIENT
  Age: 19 Year
  Sex: Male
  Weight: 52.154 kg

DRUGS (2)
  1. ADAPALENE\BENZOYL PEROXIDE [Suspect]
     Active Substance: ADAPALENE\BENZOYL PEROXIDE
     Indication: Acne
     Dosage: THIN FILM, QD
     Route: 061
     Dates: start: 20201031
  2. DOXYCYCLINE [Concomitant]
     Active Substance: DOXYCYCLINE
     Indication: Acne
     Dosage: 150 MG, UNKNOWN
     Route: 065
     Dates: start: 20201031

REACTIONS (2)
  - Application site dryness [Not Recovered/Not Resolved]
  - Application site burn [Recovered/Resolved]

NARRATIVE: CASE EVENT DATE: 20210205
